FAERS Safety Report 20674384 (Version 1)
Quarter: 2022Q2

REPORT INFORMATION
  Report Type: Spontaneous
  Country: KR (occurrence: KR)
  Receive Date: 20220405
  Receipt Date: 20220405
  Transmission Date: 20220721
  Serious: Yes (Other)
  Sender: FDA-Public Use
  Company Number: KR-ORGANON-O2104KOR001235

PATIENT
  Age: 37 Year
  Sex: Female

DRUGS (5)
  1. ETONOGESTREL [Suspect]
     Active Substance: ETONOGESTREL
     Indication: Heavy menstrual bleeding
     Dosage: 1 IMPLANT IN LEFT UPPER ARM
     Dates: start: 20180220, end: 20211110
  2. ETONOGESTREL [Suspect]
     Active Substance: ETONOGESTREL
     Indication: Menstruation irregular
  3. CIMETIDINE [Concomitant]
     Active Substance: CIMETIDINE
     Dosage: QUANTITY 3, DAYS 3
     Route: 048
     Dates: start: 20180220
  4. LOCPREN [Concomitant]
     Dosage: QUANTITY 3, DAYS 3
     Route: 048
     Dates: start: 20180220
  5. CEPHRADINE [Concomitant]
     Active Substance: CEPHRADINE
     Dosage: QUANTITY 3, DAYS 3
     Dates: start: 20180220

REACTIONS (17)
  - Device dislocation [Recovered/Resolved]
  - Hypokinesia [Unknown]
  - Weight abnormal [Unknown]
  - Device difficult to use [Recovered/Resolved]
  - Device issue [Recovered/Resolved]
  - Implant site injury [Unknown]
  - Complication of device removal [Recovered/Resolved]
  - Complication of device removal [Recovered/Resolved]
  - Complication of device removal [Recovered/Resolved]
  - Device deployment issue [Recovered/Resolved]
  - Discomfort [Unknown]
  - Implant site pain [Unknown]
  - Implant site bruising [Recovered/Resolved]
  - Amenorrhoea [Unknown]
  - Incorrect product administration duration [Unknown]
  - Product prescribing issue [Unknown]
  - Product use in unapproved indication [Unknown]

NARRATIVE: CASE EVENT DATE: 20180101
